FAERS Safety Report 7328297-9 (Version None)
Quarter: 2011Q1

REPORT INFORMATION
  Report Type: 
  Country: None (occurrence: None)
  Receive Date: 20110223
  Receipt Date: 20110210
  Transmission Date: 20110831
  Serious: Yes (Hospitalization)
  Sender: FDA-Public Use
  Company Number: 2011S1000061

PATIENT
  Age: 71 Year
  Sex: Male
  Weight: 58 kg

DRUGS (12)
  1. FRANDOL [Concomitant]
  2. LIVALO [Suspect]
     Indication: HYPERLIPIDAEMIA
     Dosage: 2 MG;1X;PO
     Route: 048
     Dates: start: 20100701, end: 20101224
  3. AMLODIPINE [Concomitant]
  4. METHYCOBAL /00324901/ [Concomitant]
  5. PRORENAL [Concomitant]
  6. MAGMITT [Concomitant]
  7. CODEINE [Concomitant]
  8. WARFARIN [Concomitant]
  9. LOXONIN-60 [Concomitant]
  10. TRYPTANOL /00002202/ [Concomitant]
  11. TAMBOCOR [Concomitant]
  12. TAKEPRON [Concomitant]

REACTIONS (2)
  - HAEMOPTYSIS [None]
  - INTERSTITIAL LUNG DISEASE [None]
